FAERS Safety Report 4783190-0 (Version None)
Quarter: 2005Q3

REPORT INFORMATION
  Report Type: 
  Country: None (occurrence: None)
  Receive Date: 20050929
  Receipt Date: 20050826
  Transmission Date: 20060218
  Serious: Yes (Hospitalization)
  Sender: FDA-Public Use
  Company Number: JP-JPN-A20052019

PATIENT
  Age: 78 Year
  Sex: Female
  Weight: 45 kg

DRUGS (6)
  1. PAXIL [Suspect]
     Indication: DEPRESSION
     Route: 048
     Dates: start: 20041216, end: 20050808
  2. ARTANE [Suspect]
     Indication: PARKINSONISM
     Dosage: 2MG TWICE PER DAY
     Route: 048
     Dates: start: 20050419, end: 20050808
  3. TOLEDOMIN [Suspect]
     Indication: DEPRESSION
     Dosage: 15MG THREE TIMES PER DAY
     Route: 048
     Dates: start: 20050802, end: 20050808
  4. LORAZEPAM [Concomitant]
     Indication: DEPRESSION
     Dosage: 1.5MG PER DAY
     Route: 048
     Dates: start: 20050218, end: 20050808
  5. SWERTIA [Concomitant]
     Route: 048
  6. ZOPICOOL [Concomitant]
     Route: 048

REACTIONS (11)
  - DECREASED APPETITE [None]
  - DYSSTASIA [None]
  - EATING DISORDER [None]
  - HYPOKINESIA [None]
  - LISTLESS [None]
  - MALAISE [None]
  - NEUROLEPTIC MALIGNANT SYNDROME [None]
  - PSYCHOMOTOR RETARDATION [None]
  - PYREXIA [None]
  - THIRST [None]
  - TREMOR [None]
